FAERS Safety Report 19256662 (Version 1)
Quarter: 2021Q2

REPORT INFORMATION
  Report Type: Spontaneous
  Country: GB (occurrence: GB)
  Receive Date: 20210513
  Receipt Date: 20210513
  Transmission Date: 20210717
  Serious: Yes (Other)
  Sender: FDA-Public Use
  Company Number: XI-VERTEX PHARMACEUTICALS-2021-007277

PATIENT
  Age: 32 Year
  Sex: Female

DRUGS (18)
  1. KALYDECO [Suspect]
     Active Substance: IVACAFTOR
     Indication: CYSTIC FIBROSIS
     Dosage: 1 TAB ( IVACAFTOR) IN THE EVENING
     Route: 048
     Dates: start: 20210324, end: 20210406
  2. RETINOL [Concomitant]
     Active Substance: RETINOL
  3. DOCUSATE [Concomitant]
     Active Substance: DOCUSATE
  4. ALPHA?TOCOPHEROL [Concomitant]
     Active Substance: .ALPHA.-TOCOPHEROL
  5. FLUOXETINE [Concomitant]
     Active Substance: FLUOXETINE HYDROCHLORIDE
  6. LEVEMIR [Concomitant]
     Active Substance: INSULIN DETEMIR
  7. AZTREONAM. [Concomitant]
     Active Substance: AZTREONAM
  8. COLECALCIFEROL [Concomitant]
     Active Substance: CHOLECALCIFEROL
  9. OMEPRAZOLE. [Concomitant]
     Active Substance: OMEPRAZOLE
  10. LAXIDO [Concomitant]
     Active Substance: POLYETHYLENE GLYCOL 3350\POTASSIUM CHLORIDE\SODIUM BICARBONATE\SODIUM CHLORIDE
  11. PREDNISOLONE. [Concomitant]
     Active Substance: PREDNISOLONE
  12. VITAMIN D [Concomitant]
     Active Substance: VITAMIN D NOS
  13. CREON [Concomitant]
     Active Substance: PANCRELIPASE AMYLASE\PANCRELIPASE LIPASE\PANCRELIPASE PROTEASE
  14. KAFTRIO [Suspect]
     Active Substance: ELEXACAFTOR\IVACAFTOR\TEZACAFTOR
     Indication: CYSTIC FIBROSIS
     Dosage: 2 TABLETS IN THE MRONING
     Route: 048
     Dates: start: 20210324, end: 20210406
  15. FIASP [Concomitant]
     Active Substance: INSULIN ASPART
  16. COLOMYCIN [Concomitant]
  17. SPIRIVA [Concomitant]
     Active Substance: TIOTROPIUM BROMIDE MONOHYDRATE
  18. DORNASE ALFA. [Concomitant]
     Active Substance: DORNASE ALFA

REACTIONS (8)
  - Delusion [Unknown]
  - Tachyphrenia [Unknown]
  - Delusion of grandeur [Unknown]
  - Irritability [Unknown]
  - Affective disorder [Recovering/Resolving]
  - Insomnia [Unknown]
  - Affect lability [Unknown]
  - Suicidal ideation [Unknown]

NARRATIVE: CASE EVENT DATE: 20210329
